FAERS Safety Report 18253691 (Version 8)
Quarter: 2021Q1

REPORT INFORMATION
  Report Type: Report from Study
  Country: CA (occurrence: CA)
  Receive Date: 20200910
  Receipt Date: 20210329
  Transmission Date: 20210419
  Serious: Yes (Other)
  Sender: FDA-Public Use
  Company Number: PHHY2018CA135956

PATIENT
  Age: 69 Year
  Sex: Female

DRUGS (15)
  1. SANDOSTATIN LAR DEPOT [Suspect]
     Active Substance: OCTREOTIDE ACETATE
     Indication: CARCINOID TUMOUR
     Dosage: 30 MG, QMO
     Route: 030
     Dates: start: 20181011
  2. PANTOPRAZOLE [Suspect]
     Active Substance: PANTOPRAZOLE
     Indication: PRODUCT USED FOR UNKNOWN INDICATION
     Dosage: 40 MG, BID
     Route: 048
     Dates: end: 2019
  3. LOPERAMIDE [Concomitant]
     Active Substance: LOPERAMIDE
     Indication: DIARRHOEA
     Dosage: UNK
     Route: 065
  4. LYRICA [Concomitant]
     Active Substance: PREGABALIN
     Indication: PRODUCT USED FOR UNKNOWN INDICATION
     Dosage: 1 DF, UNK (1 COMPRIME)
     Route: 065
  5. OLESTYR [Concomitant]
     Active Substance: CHOLESTYRAMINE
     Indication: PRODUCT USED FOR UNKNOWN INDICATION
     Dosage: 4 G, BID
     Route: 048
  6. METAMUCIL [Concomitant]
     Active Substance: PLANTAGO SEED
     Indication: PRODUCT USED FOR UNKNOWN INDICATION
     Dosage: UNK (1 AND 1/2 TBSP (MIX IN 1/2 CUP OF WATER))
     Route: 048
  7. SANDOSTATIN LAR DEPOT [Suspect]
     Active Substance: OCTREOTIDE ACETATE
     Dosage: 40 MG, UNK
     Route: 030
     Dates: start: 2018
  8. TYLENOL [Concomitant]
     Active Substance: ACETAMINOPHEN
     Indication: PRODUCT USED FOR UNKNOWN INDICATION
     Dosage: UNK UNK, PRN
     Route: 065
  9. ATIVAN [Concomitant]
     Active Substance: LORAZEPAM
     Indication: PRODUCT USED FOR UNKNOWN INDICATION
     Dosage: UNK
     Route: 065
  10. SANDOSTATIN LAR DEPOT [Suspect]
     Active Substance: OCTREOTIDE ACETATE
     Dosage: 60 MG, QMO
     Route: 030
     Dates: start: 20181011
  11. VOLTAREN [Suspect]
     Active Substance: DICLOFENAC SODIUM
     Indication: HYPERSENSITIVITY
     Dosage: UNK
     Route: 065
  12. UREMOL [Concomitant]
     Active Substance: UREA
     Indication: PRODUCT USED FOR UNKNOWN INDICATION
     Dosage: 5 %, PRN
     Route: 061
  13. MAGNESIUM [Concomitant]
     Active Substance: MAGNESIUM
     Indication: PRODUCT USED FOR UNKNOWN INDICATION
     Dosage: 250 MG, TID
     Route: 048
  14. SANDOSTATIN LAR DEPOT [Suspect]
     Active Substance: OCTREOTIDE ACETATE
     Dosage: 60 MG, QMO
     Route: 030
  15. MELATONIN [Concomitant]
     Active Substance: MELATONIN
     Indication: PRODUCT USED FOR UNKNOWN INDICATION
     Dosage: 3 MG (1 PILL AT BEDTIME)
     Route: 048

REACTIONS (24)
  - Blood cholesterol increased [Unknown]
  - Limb discomfort [Unknown]
  - Blood magnesium decreased [Unknown]
  - Neurological symptom [Unknown]
  - Injection site bruising [Unknown]
  - Diarrhoea [Not Recovered/Not Resolved]
  - Influenza [Recovering/Resolving]
  - Pyrexia [Unknown]
  - Intestinal obstruction [Unknown]
  - Weight decreased [Unknown]
  - Insomnia [Unknown]
  - Pain [Unknown]
  - Hypersensitivity [Unknown]
  - Cough [Recovered/Resolved]
  - Blood pressure diastolic decreased [Unknown]
  - Injection site haemorrhage [Recovered/Resolved]
  - Colorectal cancer [Unknown]
  - Nasopharyngitis [Unknown]
  - Rhinorrhoea [Recovered/Resolved]
  - Fatigue [Unknown]
  - Dizziness [Unknown]
  - Dyspnoea [Unknown]
  - Injection site mass [Recovering/Resolving]
  - Incorrect dose administered [Unknown]

NARRATIVE: CASE EVENT DATE: 2020
